FAERS Safety Report 19153153 (Version 1)
Quarter: 2021Q2

REPORT INFORMATION
  Report Type: Spontaneous
  Country: DE (occurrence: DE)
  Receive Date: 20210419
  Receipt Date: 20210419
  Transmission Date: 20210717
  Serious: Yes (Death, Hospitalization, Other)
  Sender: FDA-Public Use
  Company Number: DE-SA-2021SA118997

PATIENT
  Age: 83 Year
  Sex: Male

DRUGS (7)
  1. ACETYLSALICYLIC ACID [Suspect]
     Active Substance: ASPIRIN
     Dosage: 100 MG, 0?1?0?0
  2. TAMSULOSIN [Concomitant]
     Active Substance: TAMSULOSIN
     Dosage: 0.4 MG, 1?0?0?0
  3. PROSTAGUTT FORTE [Concomitant]
     Active Substance: HERBALS
     Dosage: 120|160 MG, 1?0?0?0
  4. CLOPIDOGREL BISULFATE. [Suspect]
     Active Substance: CLOPIDOGREL BISULFATE
     Dosage: 75 MG, 1?0?0?0
  5. TOLTERODINE [Concomitant]
     Active Substance: TOLTERODINE
     Dosage: 4 MG, 1?0?0?0
  6. TELMISARTAN. [Concomitant]
     Active Substance: TELMISARTAN
     Dosage: 80 MG, 0.5?0?0?0
  7. ATORVASTATIN [Concomitant]
     Active Substance: ATORVASTATIN
     Dosage: 10 MG, 0?0?1?0

REACTIONS (6)
  - Faecaloma [Unknown]
  - Dizziness [Unknown]
  - Asthenia [Unknown]
  - Anaemia [Unknown]
  - Dyspnoea exertional [Unknown]
  - Haematochezia [Unknown]

NARRATIVE: CASE EVENT DATE: 20201013
